FAERS Safety Report 22108064 (Version 1)
Quarter: 2023Q1

REPORT INFORMATION
  Report Type: Spontaneous
  Country: US (occurrence: US)
  Receive Date: 20230317
  Receipt Date: 20230317
  Transmission Date: 20230418
  Serious: No
  Sender: FDA-Public Use
  Company Number: US-SA-SAC20230315000618

PATIENT
  Sex: Female
  Weight: 68.03 kg

DRUGS (1)
  1. CEREZYME [Suspect]
     Active Substance: IMIGLUCERASE
     Indication: Gaucher^s disease
     Dosage: 2800 IU, QOW
     Route: 042
     Dates: start: 20220905

REACTIONS (1)
  - Weight decreased [Unknown]
